FAERS Safety Report 6984014-3 (Version None)
Quarter: 2010Q3

REPORT INFORMATION
  Report Type: 
  Country: None (occurrence: None)
  Receive Date: 20100915
  Receipt Date: 20090514
  Transmission Date: 20110219
  Serious: No
  Sender: FDA-Public Use
  Company Number: US-WYE-H09357409

PATIENT
  Sex: Female
  Weight: 72.19 kg

DRUGS (5)
  1. PRISTIQ [Suspect]
     Indication: DEPRESSION
     Route: 048
     Dates: start: 20090101, end: 20090504
  2. PRISTIQ [Suspect]
     Route: 048
     Dates: start: 20090505, end: 20090511
  3. RANITIDINE [Concomitant]
  4. VITAMINS [Concomitant]
  5. PREVACID [Concomitant]

REACTIONS (5)
  - DIZZINESS [None]
  - DRUG EXPOSURE DURING PREGNANCY [None]
  - DRUG WITHDRAWAL SYNDROME [None]
  - NAUSEA [None]
  - PARAESTHESIA [None]
